FAERS Safety Report 7519379-7 (Version None)
Quarter: 2011Q2

REPORT INFORMATION
  Report Type: 
  Country: None (occurrence: None)
  Receive Date: 20110602
  Receipt Date: 20110523
  Transmission Date: 20111010
  Serious: Yes (Hospitalization)
  Sender: FDA-Public Use
  Company Number: PHHY2011GB43721

PATIENT
  Age: 42 Year
  Sex: Female

DRUGS (8)
  1. ATRACURIUM BESYLATE [Concomitant]
     Indication: INDUCTION OF ANAESTHESIA
  2. MIDAZOLAM HCL [Concomitant]
     Indication: INDUCTION OF ANAESTHESIA
  3. MORPHINE [Concomitant]
     Indication: INDUCTION OF ANAESTHESIA
  4. PROSTIGMIN BROMIDE [Concomitant]
     Indication: INDUCTION OF ANAESTHESIA
  5. ONDANSETRON [Suspect]
     Indication: ANTIEMETIC SUPPORTIVE CARE
     Dosage: 4 MG, UNK
     Route: 042
     Dates: start: 20110405, end: 20110405
  6. ALFENTANIL [Concomitant]
     Indication: INDUCTION OF ANAESTHESIA
  7. PROPOFOL [Concomitant]
     Indication: INDUCTION OF ANAESTHESIA
  8. GLYCOPYRROLATE [Concomitant]
     Indication: INDUCTION OF ANAESTHESIA

REACTIONS (6)
  - NAUSEA [None]
  - OXYGEN SATURATION DECREASED [None]
  - PANIC ATTACK [None]
  - UNRESPONSIVE TO STIMULI [None]
  - CONVULSION [None]
  - SOMNOLENCE [None]
